FAERS Safety Report 20320359 (Version 1)
Quarter: 2022Q1

REPORT INFORMATION
  Report Type: Spontaneous
  Country: FR (occurrence: FR)
  Receive Date: 20220111
  Receipt Date: 20220111
  Transmission Date: 20220423
  Serious: Yes (Congenital Anomaly, Other)
  Sender: FDA-Public Use
  Company Number: FR-ABBVIE-22K-056-4228610-00

PATIENT
  Sex: Female

DRUGS (1)
  1. VALPROATE SODIUM [Suspect]
     Active Substance: VALPROATE SODIUM
     Indication: Maternal exposure timing unspecified
     Route: 064

REACTIONS (15)
  - Autism spectrum disorder [Not Recovered/Not Resolved]
  - Language disorder [Not Recovered/Not Resolved]
  - Ear disorder [Not Recovered/Not Resolved]
  - Ligament laxity [Not Recovered/Not Resolved]
  - Eye disorder [Not Recovered/Not Resolved]
  - Jaundice [Not Recovered/Not Resolved]
  - Foot deformity [Not Recovered/Not Resolved]
  - Cognitive disorder [Not Recovered/Not Resolved]
  - Dyslexia [Not Recovered/Not Resolved]
  - Learning disorder [Not Recovered/Not Resolved]
  - Dysgraphia [Not Recovered/Not Resolved]
  - Anxiety disorder [Not Recovered/Not Resolved]
  - Talipes [Not Recovered/Not Resolved]
  - Dyslexia [Not Recovered/Not Resolved]
  - Foetal exposure during pregnancy [Unknown]
